FAERS Safety Report 5658387-8 (Version None)
Quarter: 2008Q1

REPORT INFORMATION
  Report Type: 
  Country: None (occurrence: None)
  Receive Date: 20080310
  Receipt Date: 20070402
  Transmission Date: 20080703
  Serious: No
  Sender: FDA-Public Use
  Company Number: US-BAYER-200710347BCC

PATIENT
  Age: 73 Year
  Sex: Female
  Weight: 132 kg

DRUGS (5)
  1. ALEVE [Suspect]
     Route: 048
     Dates: start: 20060101
  2. ALEVE [Suspect]
     Dosage: TOTAL DAILY DOSE: 880 MG  UNIT DOSE: 220 MG
     Route: 048
     Dates: start: 20070129
  3. CARDIZEM [Concomitant]
  4. GLYBURIDE [Concomitant]
  5. ASPIRIN [Concomitant]

REACTIONS (1)
  - MUSCLE SPASMS [None]
